FAERS Safety Report 7969325-7 (Version None)
Quarter: 2011Q4

REPORT INFORMATION
  Report Type: 
  Country: None (occurrence: None)
  Receive Date: 20111209
  Receipt Date: 20111130
  Transmission Date: 20120403
  Serious: Yes (Hospitalization)
  Sender: FDA-Public Use
  Company Number: JP-ASTRAZENECA-2011SE64113

PATIENT
  Age: 34518 Day
  Sex: Female

DRUGS (12)
  1. DILTIAZEM HCL [Concomitant]
     Indication: ANGINA PECTORIS
     Route: 048
     Dates: start: 20030101
  2. ONEALFA [Concomitant]
     Indication: OSTEOPOROSIS
     Route: 048
     Dates: start: 20030101
  3. AMITRIPTYLINE HCL [Concomitant]
     Indication: NEURALGIA
     Route: 048
     Dates: start: 20100930
  4. CEROCRAL [Concomitant]
     Indication: CEREBRAL INFARCTION
     Route: 048
  5. FAMOTIDINE [Concomitant]
     Indication: GASTRITIS
     Route: 048
     Dates: start: 20030101
  6. ANTEBATE [Concomitant]
     Indication: DERMATITIS
     Route: 061
     Dates: start: 20111006
  7. LOCOID [Suspect]
     Indication: DERMATITIS
     Route: 061
     Dates: start: 20111006
  8. NEUROTROPIN [Concomitant]
     Indication: NEURALGIA
     Route: 048
     Dates: start: 20100930
  9. IRESSA [Suspect]
     Indication: NON-SMALL CELL LUNG CANCER
     Route: 048
     Dates: start: 20110914, end: 20111015
  10. SIGMART [Concomitant]
     Indication: ANGINA PECTORIS
     Route: 048
  11. MERISLON [Concomitant]
     Indication: DIZZINESS
     Route: 048
     Dates: start: 20030101
  12. ASPIRIN [Concomitant]
     Indication: CEREBRAL INFARCTION
     Route: 048
     Dates: start: 20030101

REACTIONS (5)
  - ERYSIPELAS [None]
  - ERYTHEMA [None]
  - SKIN FISSURES [None]
  - SKIN EXFOLIATION [None]
  - RASH PAPULAR [None]
